FAERS Safety Report 17551681 (Version 1)
Quarter: 2020Q1

REPORT INFORMATION
  Report Type: Spontaneous
  Country: US (occurrence: US)
  Receive Date: 20200317
  Receipt Date: 20200317
  Transmission Date: 20200409
  Serious: Yes (Hospitalization, Other)
  Sender: FDA-Public Use
  Company Number: US-009507513-2003USA004180

PATIENT
  Sex: Male

DRUGS (6)
  1. DIGOXIN. [Concomitant]
     Active Substance: DIGOXIN
  2. WARFARIN [Concomitant]
     Active Substance: WARFARIN
  3. MITOMYCIN. [Suspect]
     Active Substance: MITOMYCIN
     Dosage: UNK
     Dates: start: 201809
  4. ATENOLOL. [Concomitant]
     Active Substance: ATENOLOL
  5. TICE BCG [Suspect]
     Active Substance: BACILLUS CALMETTE-GUERIN SUBSTRAIN TICE LIVE ANTIGEN
     Indication: BLADDER CANCER STAGE 0, WITH CANCER IN SITU
     Dosage: ONCE A WEEK FOR 6 WEEKS
     Route: 043
     Dates: start: 201701, end: 2017
  6. TICE BCG [Suspect]
     Active Substance: BACILLUS CALMETTE-GUERIN SUBSTRAIN TICE LIVE ANTIGEN
     Dosage: ONCE A WEEK FOR 6 WEEKS
     Route: 043
     Dates: start: 2017, end: 201709

REACTIONS (9)
  - Drug ineffective [Not Recovered/Not Resolved]
  - Drug ineffective [Not Recovered/Not Resolved]
  - Haematuria [Not Recovered/Not Resolved]
  - Pollakiuria [Not Recovered/Not Resolved]
  - Haemorrhage urinary tract [Not Recovered/Not Resolved]
  - Bladder injury [Unknown]
  - Bladder pain [Recovered/Resolved]
  - Sneezing [Unknown]
  - Genital discomfort [Not Recovered/Not Resolved]

NARRATIVE: CASE EVENT DATE: 2017
